FAERS Safety Report 6050931-4 (Version None)
Quarter: 2009Q1

REPORT INFORMATION
  Report Type: 
  Country: None (occurrence: None)
  Receive Date: 20090122
  Receipt Date: 20090122
  Transmission Date: 20090719
  Serious: Yes (Hospitalization)
  Sender: FDA-Public Use
  Company Number: None

PATIENT
  Age: 18 Year
  Sex: Male
  Weight: 85.6 kg

DRUGS (1)
  1. CLENBUTEROL UNKNOWN UNKNOWN [Suspect]
     Dates: end: 20090119

REACTIONS (6)
  - CARDIAC ENZYMES INCREASED [None]
  - CHEST PAIN [None]
  - DYSPNOEA [None]
  - NAUSEA [None]
  - TACHYCARDIA [None]
  - VOMITING [None]
